FAERS Safety Report 5090115-X (Version None)
Quarter: 2006Q3

REPORT INFORMATION
  Report Type: 
  Country: None (occurrence: None)
  Receive Date: 20060828
  Receipt Date: 20051103
  Transmission Date: 20061208
  Serious: Yes (Hospitalization, Disabling)
  Sender: FDA-Public Use
  Company Number: US-ROCHE-423816

PATIENT
  Sex: Female
  Weight: 90.7 kg

DRUGS (1)
  1. ACCUTANE [Suspect]
     Dosage: 5 MONTH COURSE.
     Route: 065
     Dates: start: 19901002, end: 19910615

REACTIONS (23)
  - ABORTION INDUCED [None]
  - ANHEDONIA [None]
  - ANXIETY [None]
  - BENIGN INTRACRANIAL HYPERTENSION [None]
  - COLITIS [None]
  - CROHN'S DISEASE [None]
  - DRUG INTOLERANCE [None]
  - EMOTIONAL DISTRESS [None]
  - GASTROINTESTINAL DISORDER [None]
  - HAEMANGIOMA [None]
  - HYPERHIDROSIS [None]
  - INFLAMMATORY BOWEL DISEASE [None]
  - INSULIN RESISTANCE [None]
  - INTESTINAL HAEMORRHAGE [None]
  - MIGRAINE WITHOUT AURA [None]
  - MOOD SWINGS [None]
  - PAPILLOEDEMA [None]
  - PARAESTHESIA [None]
  - PREGNANCY [None]
  - RHEUMATOID ARTHRITIS [None]
  - SCAR [None]
  - THERAPEUTIC PRODUCT INEFFECTIVE [None]
  - TINNITUS [None]
